FAERS Safety Report 19358276 (Version 1)
Quarter: 2021Q2

REPORT INFORMATION
  Report Type: Spontaneous
  Country: CA (occurrence: CA)
  Receive Date: 20210601
  Receipt Date: 20210601
  Transmission Date: 20210717
  Serious: Yes (Death, Hospitalization)
  Sender: FDA-Public Use
  Company Number: CA-ROCHE-2839748

PATIENT
  Age: 63 Year
  Sex: Female
  Weight: 50 kg

DRUGS (5)
  1. XELODA [Suspect]
     Active Substance: CAPECITABINE
     Indication: GALLBLADDER CANCER
     Route: 048
  2. XANAX [Concomitant]
     Active Substance: ALPRAZOLAM
  3. LAX?A?DAY [Concomitant]
     Active Substance: POLYETHYLENE GLYCOL 3350
  4. ROSUVASTATIN. [Concomitant]
     Active Substance: ROSUVASTATIN
     Route: 065
  5. RESTORIL [Concomitant]
     Active Substance: TEMAZEPAM

REACTIONS (9)
  - Renal replacement therapy [Fatal]
  - Abdominal operation [Fatal]
  - Aortic thrombosis [Fatal]
  - Thrombectomy [Fatal]
  - Acute kidney injury [Fatal]
  - Renal tubular necrosis [Fatal]
  - Abdominal compartment syndrome [Fatal]
  - Fasciotomy [Fatal]
  - Angioplasty [Fatal]
